FAERS Safety Report 8129491-X (Version None)
Quarter: 2012Q1

REPORT INFORMATION
  Report Type: 
  Country: None (occurrence: None)
  Receive Date: 20120210
  Receipt Date: 20120130
  Transmission Date: 20120608
  Serious: Yes (Hospitalization)
  Sender: FDA-Public Use
  Company Number: AU-BRISTOL-MYERS SQUIBB COMPANY-16298259

PATIENT
  Age: 35 Year
  Sex: Female

DRUGS (3)
  1. METFORMIN HCL [Suspect]
     Indication: POLYCYSTIC OVARIES
  2. VALPROIC ACID [Suspect]
     Indication: PSYCHIATRIC SYMPTOM
  3. LITHIUM CARBONATE [Concomitant]

REACTIONS (3)
  - METABOLIC ACIDOSIS [None]
  - OFF LABEL USE [None]
  - PANCREATITIS ACUTE [None]
